FAERS Safety Report 9025608 (Version 2)
Quarter: 2013Q1

REPORT INFORMATION
  Report Type: Other
  Country: GB (occurrence: GB)
  Receive Date: 20130123
  Receipt Date: 20130310
  Transmission Date: 20140127
  Serious: Yes (Life-Threatening, Hospitalization)
  Sender: FDA-Public Use
  Company Number: GB-BRISTOL-MYERS SQUIBB COMPANY-17293713

PATIENT
  Age: 61 Year
  Sex: Male

DRUGS (5)
  1. METFORMIN HCL [Suspect]
     Indication: TYPE 2 DIABETES MELLITUS
  2. ARIPIPRAZOLE [Suspect]
     Indication: SCHIZOPHRENIA
     Dosage: 5MG, 10MG AND 15MG
     Route: 048
  3. FLUPENTIXOL DECANOATE [Suspect]
     Indication: SCHIZOPHRENIA
     Dosage: 10.7143MG DEPOT
     Route: 048
     Dates: start: 1976
  4. TRIFLUOPERAZINE [Suspect]
     Indication: SCHIZOPHRENIA
  5. PROCYCLIDINE [Suspect]
     Indication: EXTRAPYRAMIDAL DISORDER
     Route: 048

REACTIONS (5)
  - Drug eruption [Recovered/Resolved]
  - Extrapyramidal disorder [Unknown]
  - Neuralgia [Unknown]
  - Sleep disorder [Unknown]
  - Mobility decreased [Unknown]
